FAERS Safety Report 5586002-0 (Version None)
Quarter: 2007Q4

REPORT INFORMATION
  Report Type: 
  Country: None (occurrence: None)
  Receive Date: 20071205
  Receipt Date: 20070110
  Transmission Date: 20080405
  Serious: Yes (Other)
  Sender: FDA-Public Use
  Company Number: HQWYE158111JAN07

PATIENT
  Age: 48 Year
  Sex: Male
  Weight: 97.61 kg

DRUGS (2)
  1. EFFEXOR XR [Suspect]
     Indication: DEPRESSION
     Dosage: 150 MG 2X PER 1 DAY, ORAL ; 150 MG 1X PER 1 DAY, ORAL
     Route: 048
     Dates: start: 20060101
  2. ACCUPRIL [Concomitant]

REACTIONS (16)
  - CONDITION AGGRAVATED [None]
  - DEHYDRATION [None]
  - DIZZINESS [None]
  - DRUG EFFECT DECREASED [None]
  - DRY MOUTH [None]
  - ERECTILE DYSFUNCTION [None]
  - FATIGUE [None]
  - HYPERHIDROSIS [None]
  - HYPERTENSION [None]
  - HYPOTENSION [None]
  - LOSS OF LIBIDO [None]
  - MOOD SWINGS [None]
  - NIGHTMARE [None]
  - SOMNOLENCE [None]
  - VERTIGO [None]
  - WEIGHT INCREASED [None]
